FAERS Safety Report 9369280 (Version 3)
Quarter: 2013Q2

REPORT INFORMATION
  Report Type: Report from Study
  Country: ES (occurrence: ES)
  Receive Date: 20130626
  Receipt Date: 20130628
  Transmission Date: 20140414
  Serious: Yes (Hospitalization)
  Sender: FDA-Public Use
  Company Number: ES-ROCHE-1218497

PATIENT
  Age: 55 Year
  Sex: Female
  Weight: 70 kg

DRUGS (17)
  1. BEVACIZUMAB [Suspect]
     Indication: COLORECTAL CANCER
     Route: 042
     Dates: start: 20130326, end: 20130410
  2. IRINOTECAN [Suspect]
     Indication: COLORECTAL CANCER
     Route: 042
     Dates: start: 20130326, end: 20130410
  3. OXALIPLATIN [Suspect]
     Indication: COLORECTAL CANCER
     Route: 042
     Dates: start: 20130318, end: 20130410
  4. FLUOROURACIL [Suspect]
     Indication: COLORECTAL CANCER
     Route: 042
     Dates: start: 20130326, end: 20130410
  5. ISOVORIN [Suspect]
     Indication: COLORECTAL CANCER
     Route: 042
     Dates: start: 20130326, end: 20130410
  6. METOCLOPRAMIDE [Concomitant]
     Indication: PROPHYLAXIS OF NAUSEA AND VOMITING
     Route: 042
     Dates: start: 20130410, end: 20130418
  7. METOCLOPRAMIDE [Concomitant]
     Indication: PROPHYLAXIS OF NAUSEA AND VOMITING
  8. OMEPRAZOLE [Concomitant]
     Indication: PROPHYLAXIS AGAINST GASTROINTESTINAL ULCER
     Route: 042
     Dates: start: 20130410
  9. KETOPROFEN [Concomitant]
     Indication: PAIN
     Route: 042
     Dates: start: 20130410
  10. DEXKETOPROFEN [Concomitant]
     Indication: PAIN
     Route: 042
     Dates: start: 20130410, end: 20130418
  11. TIENAM [Concomitant]
     Route: 042
     Dates: start: 20130410, end: 20130418
  12. URBAL [Concomitant]
     Route: 065
     Dates: start: 20130417, end: 20130418
  13. FORTIMEL [Concomitant]
     Indication: MEDICAL DIET
     Dosage: DAILY, 3 TIMES
     Route: 048
     Dates: start: 20130419, end: 20130421
  14. GLUCOSALINE [Concomitant]
     Indication: DEHYDRATION
     Route: 042
     Dates: start: 20130410, end: 20130419
  15. AMINOVEN [Concomitant]
     Dosage: PER DAY
     Route: 042
     Dates: start: 20130410, end: 20130414
  16. VENOFER [Concomitant]
     Indication: ANAEMIA
     Route: 065
     Dates: start: 20130414, end: 20130414
  17. FUROSEMIDE [Concomitant]
     Dosage: DAILY
     Route: 042
     Dates: start: 20130412, end: 20130412

REACTIONS (3)
  - Febrile neutropenia [Recovered/Resolved]
  - Stomatitis [Recovered/Resolved]
  - Diarrhoea [Recovered/Resolved]
